FAERS Safety Report 9909735 (Version 1)
Quarter: 2014Q1

REPORT INFORMATION
  Report Type: Spontaneous
  Country: US (occurrence: US)
  Receive Date: 20140219
  Receipt Date: 20140219
  Transmission Date: 20141002
  Serious: No
  Sender: FDA-Public Use
  Company Number: US-PFIZER INC-2014043778

PATIENT
  Age: 16 Year
  Sex: Male

DRUGS (2)
  1. GENOTROPIN MQ [Suspect]
     Indication: BODY HEIGHT BELOW NORMAL
     Dosage: 2 MG, 1X/DAY
     Dates: start: 20131025
  2. GENOTROPIN MQ [Suspect]
     Dosage: 2 MG, 1X/DAY

REACTIONS (1)
  - Hot flush [Unknown]
